FAERS Safety Report 25162861 (Version 1)
Quarter: 2025Q2

REPORT INFORMATION
  Report Type: Spontaneous
  Country: US (occurrence: US)
  Receive Date: 20250404
  Receipt Date: 20250404
  Transmission Date: 20250717
  Serious: Yes (Life-Threatening)
  Sender: PFIZER
  Company Number: US-PFIZER INC-PV202500038701

PATIENT
  Age: 20 Month
  Sex: Female

DRUGS (5)
  1. EPINEPHRINE [Suspect]
     Active Substance: EPINEPHRINE
     Indication: Vasoplegia syndrome
  2. HYDROCORTISONE [Suspect]
     Active Substance: HYDROCORTISONE
     Indication: Stress
  3. NOREPINEPHRINE BITARTRATE [Suspect]
     Active Substance: NOREPINEPHRINE BITARTRATE
     Indication: Vasoplegia syndrome
  4. METHYLENE BLUE [Suspect]
     Active Substance: METHYLENE BLUE
     Indication: Vasoplegia syndrome
  5. VASOPRESSIN [Suspect]
     Active Substance: VASOPRESSIN
     Indication: Vasoplegia syndrome

REACTIONS (1)
  - Drug ineffective [Unknown]
